FAERS Safety Report 8866241 (Version 1)
Quarter: 2012Q4

REPORT INFORMATION
  Report Type: 
  Country: US (occurrence: US)
  Receive Date: 20121025
  Receipt Date: 20121025
  Transmission Date: 20130627
  Serious: Yes (Hospitalization)
  Sender: FDA-Public Use
  Company Number: US-GLAXOSMITHKLINE-A0980112A

PATIENT
  Sex: Female

DRUGS (1)
  1. ALLI [Suspect]
     Indication: PRODUCT USED FOR UNKNOWN INDICATION
     Dosage: 60MG Three times per day
     Route: 048
     Dates: start: 20071201, end: 20071208

REACTIONS (3)
  - Urosepsis [Recovering/Resolving]
  - Kidney enlargement [Unknown]
  - Calculus ureteric [Unknown]
